FAERS Safety Report 10254590 (Version 1)
Quarter: 2014Q2

REPORT INFORMATION
  Report Type: Spontaneous
  Country: US (occurrence: US)
  Receive Date: 20140624
  Receipt Date: 20140624
  Transmission Date: 20141212
  Serious: Yes (Other)
  Sender: FDA-Public Use
  Company Number: PHEH2014US012241

PATIENT
  Sex: Female

DRUGS (12)
  1. COMBIPATCH [Suspect]
     Indication: MENSTRUAL DISORDER
     Dosage: (0.05/0.14)
     Route: 062
     Dates: end: 201310
  2. COMBIPATCH [Suspect]
     Dosage: (ONCE A WEEK)
     Route: 062
  3. GLIPIZIDE [Suspect]
     Indication: DIABETES MELLITUS
     Dosage: 5 MG, QD
  4. GLIPIZIDE [Suspect]
     Dosage: 2.5 MG, QD
  5. ENBREL [Suspect]
     Indication: PSORIASIS
     Dosage: UNK UKN, UNK
  6. ENBREL [Suspect]
     Dosage: UNK UKN, UNK
     Dates: start: 201405
  7. NEURONTIN [Suspect]
  8. ASPIRIN [Suspect]
  9. LYRICA [Suspect]
  10. METOPROLOL [Concomitant]
     Dosage: 100 MG, BID
  11. ALEVE [Concomitant]
     Indication: ARTHRITIS
     Dosage: 1 DF, BID
  12. CHLOR TRIMETON [Concomitant]
     Indication: HYPERSENSITIVITY
     Dosage: UNK UKN, PRN

REACTIONS (15)
  - Diabetes mellitus [Unknown]
  - Abscess [Unknown]
  - Paralysis [Unknown]
  - Thrombosis [Unknown]
  - Pulmonary function test decreased [Unknown]
  - Psoriasis [Unknown]
  - Weight decreased [Unknown]
  - Hyperhidrosis [Unknown]
  - Body height decreased [Unknown]
  - Hot flush [Unknown]
  - Feeling hot [Unknown]
  - Blood glucose decreased [Unknown]
  - Dizziness [Unknown]
  - Arthritis [Unknown]
  - Incorrect product storage [Unknown]
